FAERS Safety Report 24903054 (Version 2)
Quarter: 2025Q1

REPORT INFORMATION
  Report Type: Spontaneous
  Country: JP (occurrence: JP)
  Receive Date: 20250130
  Receipt Date: 20250218
  Transmission Date: 20250409
  Serious: Yes (Death, Hospitalization, Other)
  Sender: AMGEN
  Company Number: JP-AMGEN-JPNSP2025017690

PATIENT
  Age: 82 Year
  Sex: Female

DRUGS (1)
  1. TAVNEOS [Suspect]
     Active Substance: AVACOPAN
     Indication: Microscopic polyangiitis
     Dosage: 30 MG, BID
     Route: 048
     Dates: start: 20230616, end: 20241203

REACTIONS (3)
  - Diarrhoea [Not Recovered/Not Resolved]
  - Pulmonary alveolar haemorrhage [Fatal]
  - Colitis ischaemic [Unknown]

NARRATIVE: CASE EVENT DATE: 20241106
